FAERS Safety Report 9099771 (Version 1)
Quarter: 2013Q1

REPORT INFORMATION
  Report Type: Spontaneous
  Country: HU (occurrence: HU)
  Receive Date: 20130214
  Receipt Date: 20130214
  Transmission Date: 20140127
  Serious: Yes (Death)
  Sender: FDA-Public Use
  Company Number: HU-ACTELION-A-CH2013-79241

PATIENT
  Age: 74 Year
  Sex: Female

DRUGS (7)
  1. TRACLEER [Suspect]
     Indication: PULMONARY ARTERIAL HYPERTENSION
     Dosage: 125 MG, BID
     Route: 048
     Dates: start: 20101020, end: 20121219
  2. TRACLEER [Suspect]
     Dosage: 62.5 MG, BID
     Route: 048
     Dates: start: 20100908, end: 20101019
  3. SILDENAFIL [Concomitant]
     Dosage: UNK
     Dates: start: 20091015
  4. FUROSEMIDE [Concomitant]
     Dosage: UNK
     Dates: start: 20091015
  5. KALIUM [Concomitant]
     Dosage: UNK
     Dates: start: 20091015
  6. DIGOXIN [Concomitant]
     Dosage: UNK
     Dates: start: 20100707
  7. ACENOCOUMAROL [Concomitant]
     Dosage: UNK
     Dates: start: 20091015

REACTIONS (1)
  - Right ventricular failure [Fatal]
